FAERS Safety Report 4897252-0 (Version None)
Quarter: 2005Q4

REPORT INFORMATION
  Report Type: 
  Country: None (occurrence: None)
  Receive Date: 20051223
  Receipt Date: 20050923
  Transmission Date: 20060501
  Serious: No
  Sender: FDA-Public Use
  Company Number: 05P-163-0311817-00

PATIENT
  Age: 70 Year
  Sex: Female
  Weight: 64.4108 kg

DRUGS (11)
  1. HUMIRA [Suspect]
     Indication: RHEUMATOID ARTHRITIS
     Dosage: 40 MG, 1 IN 2 WK, SUBCUTANEOUS
     Route: 058
     Dates: start: 20050601
  2. CARVEDILOL [Concomitant]
  3. CLONIDINE [Concomitant]
  4. AMLODIPINE BESYLATE [Concomitant]
  5. PROPRANOLOL [Concomitant]
  6. METHOTREXATE [Concomitant]
  7. FOLIC ACID [Concomitant]
  8. MELOXICAM [Concomitant]
  9. IRON [Concomitant]
  10. GLUCOSAMINE [Concomitant]
  11. CALCIUM GLUCONATE [Concomitant]

REACTIONS (2)
  - INJECTION SITE IRRITATION [None]
  - INJECTION SITE PAIN [None]
